FAERS Safety Report 5850826-2 (Version None)
Quarter: 2008Q3

REPORT INFORMATION
  Report Type: 
  Country: None (occurrence: None)
  Receive Date: 20080818
  Receipt Date: 20080804
  Transmission Date: 20090109
  Serious: Yes (Life-Threatening, Hospitalization, Disabling)
  Sender: FDA-Public Use
  Company Number: 2008AL009510

PATIENT
  Age: 39 Year
  Sex: Female

DRUGS (9)
  1. CITALOPRAM HYDROBROMIDE [Suspect]
     Indication: DEPRESSION
     Dosage: 40 MG; QD; PO
     Route: 048
     Dates: end: 20070713
  2. REBOXETINE [Concomitant]
  3. ZOPICLONE [Concomitant]
  4. QUININE [Concomitant]
  5. GABAPENTIN [Concomitant]
  6. MEBEVERINE [Concomitant]
  7. CELECOXIB [Concomitant]
  8. CYCLIZINE [Concomitant]
  9. LOPERAMIDE HCL [Concomitant]

REACTIONS (19)
  - ARRHYTHMIA [None]
  - BLOOD CREATINE PHOSPHOKINASE INCREASED [None]
  - CLONIC CONVULSION [None]
  - CONVULSION [None]
  - DRUG LEVEL INCREASED [None]
  - GLASGOW COMA SCALE ABNORMAL [None]
  - HEADACHE [None]
  - HYPERREFLEXIA [None]
  - HYPERSOMNIA [None]
  - HYPERTENSION [None]
  - HYPERTHERMIA [None]
  - HYPERTONIA [None]
  - HYPOTENSION [None]
  - MUSCLE RIGIDITY [None]
  - MYOCLONUS [None]
  - NAUSEA [None]
  - PAIN [None]
  - RHABDOMYOLYSIS [None]
  - VENTRICULAR TACHYCARDIA [None]
